FAERS Safety Report 5635899-4 (Version None)
Quarter: 2008Q1

REPORT INFORMATION
  Report Type: 
  Country: None (occurrence: None)
  Receive Date: 20080221
  Receipt Date: 20080213
  Transmission Date: 20080703
  Serious: Yes (Hospitalization)
  Sender: FDA-Public Use
  Company Number: GXKR2008GB01666

PATIENT
  Age: 63 Year
  Sex: Female
  Weight: 60 kg

DRUGS (4)
  1. AZATHIOPRINE [Suspect]
     Dosage: 150 MG, QD, ORAL
     Route: 048
     Dates: start: 20071217, end: 20080106
  2. ATENOLOL [Suspect]
     Dosage: 50 MG, QD, ORAL
     Route: 048
  3. MAXIDEX(BENZALKONIUM CHLORIDE, DEXAMETHASONE, PHENYLMERCURIC NITRATE) [Suspect]
     Dosage: BID, OPHTHALMIC
     Route: 047
     Dates: start: 20071001
  4. RAPAMUNE [Suspect]
     Dosage: 3.5 MG, QD, ORAL
     Route: 048
     Dates: start: 20071001

REACTIONS (4)
  - DIARRHOEA [None]
  - DRUG HYPERSENSITIVITY [None]
  - RENAL FAILURE ACUTE [None]
  - RHABDOMYOLYSIS [None]
